FAERS Safety Report 15919166 (Version 3)
Quarter: 2019Q1

REPORT INFORMATION
  Report Type: Spontaneous
  Country: GB (occurrence: GB)
  Receive Date: 20190205
  Receipt Date: 20190308
  Transmission Date: 20190417
  Serious: Yes (Hospitalization, Other)
  Sender: FDA-Public Use
  Company Number: GB-MYLANLABS-2019M1008917

PATIENT
  Age: 42 Year
  Sex: Male

DRUGS (7)
  1. COLOMYCIN                          /00013203/ [Interacting]
     Active Substance: COLISTIN SULFATE
     Dosage: 2 MILLI-INTERNATIONAL UNIT, TID
     Route: 042
  2. TOBRAMYCIN. [Interacting]
     Active Substance: TOBRAMYCIN
     Dosage: 160 MILLIGRAM, TID
     Route: 042
  3. TOBRAMYCIN. [Interacting]
     Active Substance: TOBRAMYCIN
     Indication: PSEUDOMONAS INFECTION
     Dosage: 160 MG TDS (9.8 MG/KG/DAY)
     Route: 042
     Dates: start: 200306
  4. SULPHAMETHOXAZOLE/TRIMETHOPRIM [Interacting]
     Active Substance: SULFAMETHOXAZOLE\TRIMETHOPRIM
     Indication: INFECTION
     Dosage: 1.44 GRAM, BID (1.44 G TWICE DAILY )
     Route: 042
     Dates: start: 200306
  5. COLOMYCIN                          /00013203/ [Interacting]
     Active Substance: COLISTIN SULFATE
     Indication: PSEUDOMONAS INFECTION
     Dosage: 2 DOSAGE FORM, TID,2 MEGAUNITS TDS
     Route: 042
     Dates: start: 200306
  6. COLOMYCIN                          /00013203/ [Interacting]
     Active Substance: COLISTIN SULFATE
     Dosage: 2 DOSAGE FORM, TID
     Route: 042
     Dates: start: 200306
  7. DICLOFENAC (DICLOFENAC) [Suspect]
     Active Substance: DICLOFENAC
     Indication: NON-CARDIAC CHEST PAIN
     Dosage: UNK
     Route: 065
     Dates: start: 200306

REACTIONS (7)
  - Drug interaction [Unknown]
  - Blood creatinine increased [Unknown]
  - Acute kidney injury [Unknown]
  - Tinnitus [Unknown]
  - Dizziness [Unknown]
  - Creatinine renal clearance decreased [Unknown]
  - Ataxia [Unknown]

NARRATIVE: CASE EVENT DATE: 2003
